FAERS Safety Report 13736417 (Version 2)
Quarter: 2017Q3

REPORT INFORMATION
  Report Type: Spontaneous
  Country: US (occurrence: US)
  Receive Date: 20170710
  Receipt Date: 20170816
  Transmission Date: 20171127
  Serious: No
  Sender: FDA-Public Use
  Company Number: US-PFIZER INC-2017296307

PATIENT
  Age: 58 Year
  Sex: Male

DRUGS (2)
  1. GABAPENTIN. [Suspect]
     Active Substance: GABAPENTIN
     Indication: NEUROPATHY PERIPHERAL
     Dosage: 200 MG, 3X/DAY(ONE 200MG CAPSULE, BY MOUTH, IN THE MORNING, ONE AT LUNCH, AND ONE AT NIGHT)
     Route: 048
     Dates: start: 201511
  2. GABAPENTIN. [Suspect]
     Active Substance: GABAPENTIN
     Dosage: 400 MG, 3X/DAY(TAKES ONE 400MG CAPSULE, BY MOUTH, IN THE MORNING, ONE AT LUNCH, AND ONE AT NIGHT)
     Route: 048

REACTIONS (4)
  - Anxiety [Unknown]
  - Drug withdrawal syndrome [Recovered/Resolved]
  - Drug ineffective for unapproved indication [Not Recovered/Not Resolved]
  - Nervousness [Unknown]

NARRATIVE: CASE EVENT DATE: 201511
